FAERS Safety Report 5308290-8 (Version None)
Quarter: 2007Q2

REPORT INFORMATION
  Report Type: 
  Country: None (occurrence: None)
  Receive Date: 20070423
  Receipt Date: 20070423
  Transmission Date: 20071010
  Serious: No
  Sender: FDA-Public Use
  Company Number: None

PATIENT
  Sex: Female
  Weight: 36.2878 kg

DRUGS (1)
  1. LISTERINE COOL AGENT FOR CHILDREN JOHNSON+ JOHNSON [Suspect]
     Indication: DENTAL DISORDER PROPHYLAXIS
     Dosage: 4X'S A WEEK/5 MOS
     Dates: start: 20060901, end: 20070201

REACTIONS (12)
  - ARTHRALGIA [None]
  - CHEST DISCOMFORT [None]
  - COUGH [None]
  - HEADACHE [None]
  - INFLUENZA LIKE ILLNESS [None]
  - NAUSEA [None]
  - NO THERAPEUTIC RESPONSE [None]
  - PAIN [None]
  - PHARYNGITIS STREPTOCOCCAL [None]
  - PHARYNGOLARYNGEAL PAIN [None]
  - PYREXIA [None]
  - WHITE BLOOD CELL COUNT INCREASED [None]
